FAERS Safety Report 19758735 (Version 1)
Quarter: 2021Q3

REPORT INFORMATION
  Report Type: Spontaneous
  Country: US (occurrence: US)
  Receive Date: 20210827
  Receipt Date: 20210827
  Transmission Date: 20211014
  Serious: No
  Sender: FDA-Public Use
  Company Number: US-GLAXOSMITHKLINE-USCH2021057262

PATIENT
  Age: 62 Year
  Sex: Male

DRUGS (1)
  1. ABREVA [Suspect]
     Active Substance: DOCOSANOL
     Indication: LIP ERYTHEMA
     Dates: start: 20210819, end: 20210819

REACTIONS (6)
  - Hypoaesthesia [Unknown]
  - Product administered at inappropriate site [Unknown]
  - Application site pain [Unknown]
  - Paraesthesia [Unknown]
  - Product storage error [Unknown]
  - Product use in unapproved indication [Unknown]
